FAERS Safety Report 6667441-3 (Version None)
Quarter: 2010Q2

REPORT INFORMATION
  Report Type: 
  Country: None (occurrence: None)
  Receive Date: 20100405
  Receipt Date: 20100402
  Transmission Date: 20101027
  Serious: Yes (Hospitalization)
  Sender: FDA-Public Use
  Company Number: FR-ROCHE-670685

PATIENT
  Sex: Male

DRUGS (18)
  1. VALIUM [Suspect]
     Indication: DRUG USE FOR UNKNOWN INDICATION
     Route: 048
     Dates: start: 20090512, end: 20090522
  2. VALIUM [Suspect]
     Route: 048
     Dates: end: 20090528
  3. DEROXAT [Suspect]
     Indication: DRUG USE FOR UNKNOWN INDICATION
     Route: 065
  4. TEMESTA [Suspect]
     Indication: DRUG USE FOR UNKNOWN INDICATION
     Dosage: START DATE: LONG TERM
     Route: 048
     Dates: end: 20090520
  5. TEMESTA [Suspect]
     Route: 048
     Dates: end: 20090522
  6. NEXIUM [Suspect]
     Indication: DRUG USE FOR UNKNOWN INDICATION
     Dosage: START DATE: LONG TERM
     Route: 048
     Dates: end: 20090522
  7. LOXEN [Suspect]
     Indication: DRUG USE FOR UNKNOWN INDICATION
     Dosage: START DATE: LONG TERM,LOXEN LP, FORM:ER
     Route: 048
  8. DEPAKENE [Suspect]
     Indication: DRUG USE FOR UNKNOWN INDICATION
     Dosage: LONG TERM TREATMENT
     Route: 048
  9. IXPRIM [Suspect]
     Indication: DRUG USE FOR UNKNOWN INDICATION
     Dosage: LONG TERM TREATMENT, 2 DOSES, TWICE DAILY
     Route: 048
     Dates: end: 20090513
  10. DIPIPERON [Suspect]
     Indication: DRUG USE FOR UNKNOWN INDICATION
     Route: 048
     Dates: start: 20090314
  11. DIPIPERON [Suspect]
     Route: 048
     Dates: start: 20090517, end: 20090522
  12. FURADANTINE [Suspect]
     Indication: DRUG USE FOR UNKNOWN INDICATION
     Dosage: DRUG REPORTED: FUDARANTINE
     Route: 048
     Dates: start: 20090516, end: 20090523
  13. KARDEGIC [Concomitant]
     Route: 048
     Dates: start: 20090517
  14. FORLAX [Concomitant]
     Indication: CONSTIPATION
     Dosage: 1 DOSE FORM, TWICE DAILY,START DATE : LONG TERM
     Route: 048
  15. AUGMENTIN '125' [Concomitant]
     Route: 042
     Dates: start: 20090522, end: 20090526
  16. OFLOCET [Concomitant]
     Dosage: STRENGTH 200 MG/40 ML
     Route: 042
     Dates: start: 20090522, end: 20090526
  17. VITAMIN B1/VITAMIN B6 [Concomitant]
     Dosage: START DATE: LONG TERM
     Route: 048
  18. VITAMIN B1/VITAMIN B6 [Concomitant]
     Dosage: DRUG REPORTED AS VITAMIN B1 B6 BAYER
     Route: 048
     Dates: start: 20090517

REACTIONS (1)
  - FALL [None]
